FAERS Safety Report 8624444 (Version 2)
Quarter: 2014Q1

REPORT INFORMATION
  Report Type: Spontaneous
  Country: US (occurrence: None)
  Receive Date: 20120323
  Receipt Date: 20130305
  Transmission Date: 20141002
  Serious: Yes (Other)
  Sender: FDA-Public Use
  Company Number: 163-21880-11071059

PATIENT
  Age: 76 Year
  Sex: Female
  Weight: 53.8 kg

DRUGS (2)
  1. REVLIMID [Suspect]
     Indication: NON-HODGKIN^S LYMPHOMA
     Route: 048
     Dates: start: 200812
  2. GABAPENTIN (GABAPENTIN) [Concomitant]

REACTIONS (7)
  - Neuropathy peripheral [None]
  - Balance disorder [None]
  - Hypoaesthesia [None]
  - Pruritus [None]
  - Joint swelling [None]
  - Diarrhoea [None]
  - Muscle spasms [None]
